FAERS Safety Report 10529834 (Version 1)
Quarter: 2014Q4

REPORT INFORMATION
  Report Type: Spontaneous
  Country: US (occurrence: None)
  Receive Date: 20141020
  Receipt Date: 20141020
  Transmission Date: 20150528
  Serious: Yes (Life-Threatening, Hospitalization)
  Sender: FDA-Public Use
  Company Number: None

PATIENT
  Age: 54 Year
  Sex: Male
  Weight: 77.11 kg

DRUGS (1)
  1. SEROQUEL [Suspect]
     Active Substance: QUETIAPINE FUMARATE
     Indication: INSOMNIA
     Route: 048
     Dates: start: 20141011, end: 20141014

REACTIONS (6)
  - Loss of consciousness [None]
  - Aggression [None]
  - Fall [None]
  - Pneumonia aspiration [None]
  - Circulatory collapse [None]
  - Intentional overdose [None]

NARRATIVE: CASE EVENT DATE: 20141014
